FAERS Safety Report 7967250-9 (Version None)
Quarter: 2011Q4

REPORT INFORMATION
  Report Type: 
  Country: None (occurrence: None)
  Receive Date: 20111209
  Receipt Date: 20111202
  Transmission Date: 20120403
  Serious: Yes (Hospitalization)
  Sender: FDA-Public Use
  Company Number: FR-BRISTOL-MYERS SQUIBB COMPANY-16272122

PATIENT
  Age: 65 Year
  Sex: Male

DRUGS (10)
  1. INNOHEP [Suspect]
     Indication: PULMONARY EMBOLISM
     Route: 058
     Dates: start: 20111007, end: 20111014
  2. HYDROCORTISONE [Concomitant]
     Route: 048
  3. NEURONTIN [Concomitant]
     Route: 048
  4. COTRIATEC [Concomitant]
     Route: 048
  5. POTASSIUM CHLORIDE [Concomitant]
     Route: 048
  6. DESLORATADINE [Concomitant]
     Route: 048
  7. FOLIC ACID [Concomitant]
     Route: 048
  8. PROSCAR [Concomitant]
     Route: 048
  9. COUMADIN [Suspect]
     Indication: PULMONARY EMBOLISM
     Dosage: 5MG
     Route: 048
     Dates: start: 20111007, end: 20111014
  10. ALFUZOSIN HCL [Concomitant]
     Route: 048

REACTIONS (2)
  - HAEMATOMA [None]
  - RED BLOOD CELL COUNT DECREASED [None]
